FAERS Safety Report 6883834-3 (Version None)
Quarter: 2010Q3

REPORT INFORMATION
  Report Type: 
  Country: None (occurrence: None)
  Receive Date: 20100729
  Receipt Date: 20100717
  Transmission Date: 20110219
  Serious: Yes (Hospitalization, Other)
  Sender: FDA-Public Use
  Company Number: US-PFIZER INC-2010089980

PATIENT
  Sex: Male
  Weight: 81 kg

DRUGS (2)
  1. CHANTIX [Suspect]
     Indication: SMOKING CESSATION THERAPY
     Dosage: 0.5 MG, 1X/DAY
     Route: 048
     Dates: start: 20100501, end: 20100101
  2. CHANTIX [Suspect]
     Dosage: 1 MG, 2X/DAY
     Route: 048
     Dates: start: 20100101, end: 20100703

REACTIONS (14)
  - AGITATION [None]
  - ASTHMA [None]
  - CHEST PAIN [None]
  - DEPRESSED MOOD [None]
  - DISORIENTATION [None]
  - DYSPNOEA [None]
  - HOSTILITY [None]
  - INJURY [None]
  - ORAL DISORDER [None]
  - PNEUMONIA [None]
  - SUICIDAL BEHAVIOUR [None]
  - SUICIDAL IDEATION [None]
  - THINKING ABNORMAL [None]
  - URTICARIA [None]
